FAERS Safety Report 4560142-7 (Version None)
Quarter: 2005Q1

REPORT INFORMATION
  Report Type: 
  Country: None (occurrence: None)
  Receive Date: 20050120
  Receipt Date: 20050120
  Transmission Date: 20050727
  Serious: No
  Sender: FDA-Public Use
  Company Number: None

PATIENT
  Age: 59 Year
  Sex: Male
  Weight: 79.3795 kg

DRUGS (1)
  1. CYCLOSPORINE (ANY GENERIC) PREPARATION [Suspect]
     Indication: HEART TRANSPLANT
     Dosage: NEORAL 125 MG PO BID
     Route: 048
     Dates: start: 19960518

REACTIONS (1)
  - NO ADVERSE EFFECT [None]
